FAERS Safety Report 19133961 (Version 1)
Quarter: 2021Q2

REPORT INFORMATION
  Report Type: Spontaneous
  Country: US (occurrence: US)
  Receive Date: 20210414
  Receipt Date: 20210414
  Transmission Date: 20210717
  Serious: Yes (Disabling)
  Sender: FDA-Public Use
  Company Number: None

PATIENT
  Age: 46 Year
  Sex: Female
  Weight: 60.75 kg

DRUGS (10)
  1. FUCIDIN [Concomitant]
     Active Substance: FUSIDATE SODIUM
  2. BETAMETHASONE VALERATE. [Concomitant]
     Active Substance: BETAMETHASONE VALERATE
  3. BUFFERED VITAMIN C [Concomitant]
  4. RANITIDINE. [Suspect]
     Active Substance: RANITIDINE
     Indication: GASTRIC PH DECREASED
     Route: 048
     Dates: start: 20170301, end: 20170630
  5. NAPROXEN. [Concomitant]
     Active Substance: NAPROXEN
  6. PEPTO?BISMOL [Concomitant]
     Active Substance: BISMUTH SUBSALICYLATE
  7. FERROUS GLUCONATE [Concomitant]
     Active Substance: FERROUS GLUCONATE
  8. PANTOPRAZOLE [Concomitant]
     Active Substance: PANTOPRAZOLE
  9. LAMISIL [Concomitant]
     Active Substance: TERBINAFINE HYDROCHLORIDE
  10. TUMS [Concomitant]
     Active Substance: CALCIUM CARBONATE

REACTIONS (11)
  - Anaemia [None]
  - Grip strength decreased [None]
  - Intervertebral disc protrusion [None]
  - Multiple injuries [None]
  - Helicobacter infection [None]
  - Unevaluable event [None]
  - Mobility decreased [None]
  - Victim of crime [None]
  - Product quality issue [None]
  - Spinal stenosis [None]
  - Vertigo [None]

NARRATIVE: CASE EVENT DATE: 20170301
